FAERS Safety Report 7397152-0 (Version None)
Quarter: 2011Q2

REPORT INFORMATION
  Report Type: 
  Country: None (occurrence: None)
  Receive Date: 20110406
  Receipt Date: 20110330
  Transmission Date: 20111010
  Serious: Yes (Hospitalization)
  Sender: FDA-Public Use
  Company Number: B0708553A

PATIENT
  Sex: Male
  Weight: 68 kg

DRUGS (10)
  1. PANADOL CODEINE [Concomitant]
  2. STAURODORM [Concomitant]
     Indication: INSOMNIA
     Route: 048
  3. KALETRA [Suspect]
     Indication: HIV INFECTION
     Dosage: 2TAB TWICE PER DAY
     Route: 048
     Dates: start: 20040512
  4. TRIZIVIR [Suspect]
     Indication: HIV INFECTION
     Dosage: 1TAB TWICE PER DAY
     Route: 048
     Dates: start: 20040512
  5. DIAZEPAM [Concomitant]
     Indication: INSOMNIA
  6. BEFACT FORTE [Concomitant]
     Dates: start: 20100625
  7. REMERON [Concomitant]
     Dosage: 1TAB PER DAY
     Route: 048
  8. NO THERAPY-VIIV [Suspect]
     Indication: HIV INFECTION
  9. DAPSONE [Concomitant]
     Indication: PROPHYLAXIS
     Dosage: 100MG PER DAY
  10. D-CURE [Concomitant]
     Indication: VITAMIN D DEFICIENCY
     Dates: start: 20100827

REACTIONS (1)
  - EPILEPSY [None]
